FAERS Safety Report 10258608 (Version 1)
Quarter: 2014Q2

REPORT INFORMATION
  Report Type: Spontaneous
  Country: FR (occurrence: FR)
  Receive Date: 20140625
  Receipt Date: 20140625
  Transmission Date: 20141212
  Serious: Yes (Other)
  Sender: FDA-Public Use
  Company Number: ALCN2014FR003612

PATIENT
  Age: 8 Year
  Sex: Female

DRUGS (2)
  1. PILOCARPINE HCL [Suspect]
     Dosage: 3 GTT, ONCE/SINGLE
     Route: 047
     Dates: start: 20140516, end: 20140516
  2. ATROPINE SULFATE [Suspect]
     Indication: OPHTHALMOLOGICAL EXAMINATION
     Dosage: UNK, NO TREATMENT

REACTIONS (3)
  - Miosis [Recovered/Resolved]
  - Drug dispensing error [Recovered/Resolved]
  - Medication error [Recovered/Resolved]
